FAERS Safety Report 17253738 (Version 45)
Quarter: 2025Q1

REPORT INFORMATION
  Report Type: Report from Study
  Country: US (occurrence: US)
  Receive Date: 20200109
  Receipt Date: 20250204
  Transmission Date: 20250409
  Serious: Yes (Other)
  Sender: TAKEDA
  Company Number: US-SHIRE-US202000327

PATIENT
  Sex: Female
  Weight: 61 kg

DRUGS (25)
  1. HUMAN IMMUNOGLOBULIN G [Suspect]
     Active Substance: HUMAN IMMUNOGLOBULIN G
     Indication: Immunodeficiency common variable
  2. HUMAN IMMUNOGLOBULIN G [Suspect]
     Active Substance: HUMAN IMMUNOGLOBULIN G
     Dosage: 20 GRAM, Q2WEEKS
     Dates: start: 20180618
  3. HUMAN IMMUNOGLOBULIN G [Suspect]
     Active Substance: HUMAN IMMUNOGLOBULIN G
     Dosage: 20 GRAM, Q2WEEKS
     Dates: start: 20180822
  4. HUMAN IMMUNOGLOBULIN G [Suspect]
     Active Substance: HUMAN IMMUNOGLOBULIN G
  5. HUMAN IMMUNOGLOBULIN G [Suspect]
     Active Substance: HUMAN IMMUNOGLOBULIN G
     Dosage: 20 GRAM, Q2WEEKS
  6. COVID-19 VACCINE NOS [Suspect]
     Active Substance: COVID-19 VACCINE
     Indication: COVID-19 immunisation
  7. ACETAMINOPHEN [Concomitant]
     Active Substance: ACETAMINOPHEN
     Indication: Product used for unknown indication
  8. DIPHENHYDRAMINE [Concomitant]
     Active Substance: DIPHENHYDRAMINE
  9. EPINEPHRINE [Concomitant]
     Active Substance: EPINEPHRINE
     Indication: Product used for unknown indication
  10. LIDOCAINE [Concomitant]
     Active Substance: LIDOCAINE
     Indication: Product used for unknown indication
  11. AFRIN NASAL DECONGESTANT [Concomitant]
  12. NEOSPORIN [Concomitant]
     Active Substance: BACITRACIN ZINC\NEOMYCIN SULFATE\POLYMYXIN B SULFATE
     Indication: Product used for unknown indication
  13. LIPITOR [Concomitant]
     Active Substance: ATORVASTATIN CALCIUM
     Indication: Product used for unknown indication
  14. SOTALOL [Concomitant]
     Active Substance: SOTALOL
  15. METHIMAZOLE [Concomitant]
     Active Substance: METHIMAZOLE
  16. ALPRAZOLAM [Concomitant]
     Active Substance: ALPRAZOLAM
  17. BENADRYL ALLERGY [Concomitant]
     Active Substance: DIPHENHYDRAMINE HYDROCHLORIDE
  18. BENICAR [Concomitant]
     Active Substance: OLMESARTAN MEDOXOMIL
     Indication: Product used for unknown indication
  19. HYDROCORTISONE [Concomitant]
     Active Substance: HYDROCORTISONE
     Indication: Product used for unknown indication
  20. ALOE [Concomitant]
     Active Substance: ALOE
  21. XARELTO [Concomitant]
     Active Substance: RIVAROXABAN
  22. CIPROFLOXACIN HYDROCHLORIDE [Concomitant]
     Active Substance: CIPROFLOXACIN HYDROCHLORIDE
  23. TRAMADOL HCL [Concomitant]
     Active Substance: TRAMADOL HYDROCHLORIDE
  24. PANTOPRAZOLE SODIUM [Concomitant]
     Active Substance: PANTOPRAZOLE SODIUM
  25. DIPHENHYDRAMINE HYDROCHLORIDE [Concomitant]
     Active Substance: DIPHENHYDRAMINE HYDROCHLORIDE

REACTIONS (27)
  - Staphylococcal infection [Unknown]
  - Atrial fibrillation [Unknown]
  - Loss of consciousness [Unknown]
  - Infection [Unknown]
  - Ear infection [Unknown]
  - Fungal infection [Unknown]
  - Chronic sinusitis [Unknown]
  - Fall [Unknown]
  - Walking aid user [Unknown]
  - Haemorrhage [Unknown]
  - Bronchitis [Unknown]
  - Seasonal allergy [Unknown]
  - Immunisation reaction [Unknown]
  - Illness [Unknown]
  - Memory impairment [Unknown]
  - Weight decreased [Unknown]
  - Multiple allergies [Unknown]
  - Needle issue [Unknown]
  - Product dose omission issue [Unknown]
  - Product storage error [Unknown]
  - Product dose omission in error [Unknown]
  - Sinusitis [Not Recovered/Not Resolved]
  - Malaise [Unknown]
  - Cough [Unknown]
  - Pain [Unknown]
  - Infusion site erythema [Unknown]
  - Infusion site swelling [Unknown]
